FAERS Safety Report 9019235 (Version 1)
Quarter: 2013Q1

REPORT INFORMATION
  Report Type: Spontaneous
  Country: FR (occurrence: FR)
  Receive Date: 20130118
  Receipt Date: 20130118
  Transmission Date: 20140127
  Serious: Yes (Hospitalization)
  Sender: FDA-Public Use
  Company Number: FR-009507513-1301FRA004431

PATIENT
  Age: 66 None
  Sex: Male

DRUGS (2)
  1. TIENAM 500MG/500MG, POUDRE POUR PERFUSION [Suspect]
     Indication: OSTEITIS
     Dosage: UNK
     Dates: start: 20120822, end: 20121212
  2. ZYVOXID [Suspect]
     Indication: OSTEITIS
     Dosage: 600 MG, BID
     Dates: start: 20120822, end: 20121212

REACTIONS (1)
  - Pancreatitis acute [Recovering/Resolving]
